FAERS Safety Report 14638506 (Version 2)
Quarter: 2018Q2

REPORT INFORMATION
  Report Type: Spontaneous
  Country: US (occurrence: US)
  Receive Date: 20180314
  Receipt Date: 20180409
  Transmission Date: 20180711
  Serious: No
  Sender: FDA-Public Use
  Company Number: US-JNJFOC-20180300329

PATIENT
  Sex: Male

DRUGS (2)
  1. INVEGA TRINZA [Suspect]
     Active Substance: PALIPERIDONE PALMITATE
     Indication: SCHIZOPHRENIA
     Route: 030
     Dates: start: 20180210
  2. INVEGA TRINZA [Suspect]
     Active Substance: PALIPERIDONE PALMITATE
     Indication: SCHIZOPHRENIA
     Route: 030
     Dates: start: 20141030

REACTIONS (7)
  - Delusion [Unknown]
  - Loss of personal independence in daily activities [Unknown]
  - Hallucination, auditory [Unknown]
  - Injection site rash [Unknown]
  - Hypoaesthesia [Unknown]
  - Injection site pruritus [Unknown]
  - Paranoia [Unknown]
